FAERS Safety Report 7567915-7 (Version None)
Quarter: 2011Q2

REPORT INFORMATION
  Report Type: 
  Country: None (occurrence: None)
  Receive Date: 20110616
  Receipt Date: 20110608
  Transmission Date: 20111010
  Serious: Yes (Hospitalization)
  Sender: FDA-Public Use
  Company Number: ALP-11-02

PATIENT
  Age: 60 Year
  Sex: Female

DRUGS (3)
  1. BUSPIRONE HCL [Concomitant]
  2. MIRTAZAPINE [Concomitant]
  3. ALPRAZOLAM [Suspect]
     Dosage: 20.25MG

REACTIONS (8)
  - SOMNOLENCE [None]
  - HYPOXIA [None]
  - ELECTROCARDIOGRAM QT PROLONGED [None]
  - ATELECTASIS [None]
  - SUICIDE ATTEMPT [None]
  - COMA SCALE ABNORMAL [None]
  - MULTIPLE DRUG OVERDOSE INTENTIONAL [None]
  - REFUSAL OF TREATMENT BY PATIENT [None]
